FAERS Safety Report 17014137 (Version 3)
Quarter: 2021Q4

REPORT INFORMATION
  Report Type: Other
  Country: CN (occurrence: CN)
  Receive Date: 20191111
  Receipt Date: 20211231
  Transmission Date: 20220303
  Serious: Yes (Hospitalization)
  Sender: FDA-Public Use
  Company Number: CN-002147023-NVSC2019CN020896

PATIENT
  Age: 52 Year
  Sex: Male
  Weight: 86 kg

DRUGS (4)
  1. RANIBIZUMAB [Suspect]
     Active Substance: RANIBIZUMAB
     Indication: Diabetic retinopathy
     Dosage: 0.05 ML
     Route: 065
     Dates: start: 20190924, end: 20191028
  2. ATORVASTATIN CALCIUM [Concomitant]
     Active Substance: ATORVASTATIN CALCIUM
     Indication: Hypolipidaemia
     Dosage: 20 MG
     Route: 065
     Dates: start: 20191015, end: 20191017
  3. PITAVASTATIN CALCIUM [Concomitant]
     Active Substance: PITAVASTATIN CALCIUM
     Indication: Blood cholesterol decreased
     Dosage: 2 MG
     Route: 065
     Dates: start: 20191017, end: 20191021
  4. AMLODIPINE BESYLATE [Concomitant]
     Active Substance: AMLODIPINE BESYLATE
     Indication: Hypertension
     Dosage: 5 MG
     Route: 065
     Dates: start: 20191019, end: 20191019

REACTIONS (2)
  - Cerebral infarction [Recovering/Resolving]
  - Dysarthria [Recovering/Resolving]

NARRATIVE: CASE EVENT DATE: 20191006
